FAERS Safety Report 16946605 (Version 1)
Quarter: 2019Q4

REPORT INFORMATION
  Report Type: Spontaneous
  Country: US (occurrence: US)
  Receive Date: 20191022
  Receipt Date: 20191022
  Transmission Date: 20200122
  Serious: No
  Sender: FDA-Public Use
  Company Number: US-BAYER-2019-187707

PATIENT
  Age: 45 Year
  Sex: Female

DRUGS (1)
  1. GADAVIST [Suspect]
     Active Substance: GADOBUTROL
     Indication: SCAN BRAIN
     Dosage: 10 ML, ONCE
     Route: 042
     Dates: start: 20191009, end: 20191009

REACTIONS (2)
  - Trance [None]
  - Hot flush [None]

NARRATIVE: CASE EVENT DATE: 20191009
